FAERS Safety Report 23875872 (Version 2)
Quarter: 2025Q2

REPORT INFORMATION
  Report Type: Spontaneous
  Country: US (occurrence: US)
  Receive Date: 20240520
  Receipt Date: 20250416
  Transmission Date: 20250716
  Serious: No
  Sender: SANOFI AVENTIS
  Company Number: US-SA-SAC20240514000984

PATIENT
  Age: 75 Year
  Sex: Male
  Weight: 77.11 kg

DRUGS (11)
  1. DUPIXENT [Suspect]
     Active Substance: DUPILUMAB
     Indication: Dermatitis atopic
     Dosage: 300 MG, QOW
     Route: 058
     Dates: start: 20230517
  2. TRIAMCINOLONE [Concomitant]
     Active Substance: TRIAMCINOLONE
  3. TAMSULOSIN [Concomitant]
     Active Substance: TAMSULOSIN
  4. TRICOR [Concomitant]
     Active Substance: FENOFIBRATE
  5. ZYRTEC [Concomitant]
     Active Substance: CETIRIZINE HYDROCHLORIDE
  6. FLONASE [Concomitant]
     Active Substance: FLUTICASONE PROPIONATE
  7. CLOBETASOL [Concomitant]
     Active Substance: CLOBETASOL
  8. SIMVASTATIN [Concomitant]
     Active Substance: SIMVASTATIN
  9. HALOBETASOL [Concomitant]
     Active Substance: HALOBETASOL
  10. ALLOPURINOL [Concomitant]
     Active Substance: ALLOPURINOL
  11. LISINOPRIL [Concomitant]
     Active Substance: LISINOPRIL

REACTIONS (2)
  - Rash macular [Unknown]
  - Pruritus [Recovered/Resolved]

NARRATIVE: CASE EVENT DATE: 20240501
